FAERS Safety Report 8760540 (Version 1)
Quarter: 2012Q4

REPORT INFORMATION
  Report Type: 
  Country: IE (occurrence: IE)
  Receive Date: 20120904
  Receipt Date: 20120904
  Transmission Date: 20130627
  Serious: Yes (Death, Hospitalization)
  Sender: FDA-Public Use
  Company Number: PHHY2012IE071827

PATIENT
  Age: 42 Year
  Sex: Male

DRUGS (8)
  1. OCTREOTIDE [Suspect]
     Indication: SHORT-BOWEL SYNDROME
  2. ORAL REHYDRATION SALT [Concomitant]
  3. HYDRALAZINE [Concomitant]
  4. ESMOLOL [Concomitant]
  5. DOXAZOSIN [Concomitant]
  6. CLONIDINE [Concomitant]
  7. DILTIAZEM [Concomitant]
  8. LISINOPRIL [Concomitant]

REACTIONS (10)
  - Death [Fatal]
  - Sepsis [Unknown]
  - Status epilepticus [Unknown]
  - Vasculitis cerebral [Unknown]
  - Blood pressure inadequately controlled [Unknown]
  - Hypertensive encephalopathy [Unknown]
  - Cerebral haemorrhage [Unknown]
  - Jaundice hepatocellular [Not Recovered/Not Resolved]
  - Jaundice cholestatic [Not Recovered/Not Resolved]
  - Dehydration [Not Recovered/Not Resolved]
